FAERS Safety Report 4293936-6 (Version None)
Quarter: 2004Q1

REPORT INFORMATION
  Report Type: 
  Country: None (occurrence: None)
  Receive Date: 20040210
  Receipt Date: 20040127
  Transmission Date: 20041129
  Serious: Yes (Congenital Anomaly)
  Sender: FDA-Public Use
  Company Number: 2004-112566-NL

PATIENT
  Age: 0 Day
  Sex: Female

DRUGS (1)
  1. NUVARING [Suspect]
     Dosage: TRANSPLACENTAL
     Route: 064
     Dates: end: 20030208

REACTIONS (2)
  - CONGENITAL FOOT MALFORMATION [None]
  - MATERNAL DRUGS AFFECTING FOETUS [None]
